FAERS Safety Report 10650011 (Version 3)
Quarter: 2014Q4

REPORT INFORMATION
  Report Type: Report from Study
  Country: JP (occurrence: JP)
  Receive Date: 20141212
  Receipt Date: 20141218
  Transmission Date: 20150529
  Serious: Yes (Death, Hospitalization)
  Sender: FDA-Public Use
  Company Number: JP-B.I. PHARMACEUTICALS,INC./RIDGEFIELD-2014-BI-47897NB

PATIENT
  Age: 77 Year
  Sex: Female
  Weight: 42 kg

DRUGS (1)
  1. GILOTRIF [Suspect]
     Active Substance: AFATINIB
     Indication: LUNG ADENOCARCINOMA
     Dosage: 30 MG
     Route: 048
     Dates: start: 20140805

REACTIONS (4)
  - Lung infection [Fatal]
  - Pyrexia [Unknown]
  - Diarrhoea [Recovered/Resolved]
  - Paronychia [Recovered/Resolved]

NARRATIVE: CASE EVENT DATE: 20140916
